FAERS Safety Report 20456867 (Version 1)
Quarter: 2022Q1

REPORT INFORMATION
  Report Type: Spontaneous
  Country: US (occurrence: US)
  Receive Date: 20220210
  Receipt Date: 20220210
  Transmission Date: 20220423
  Serious: No
  Sender: FDA-Public Use
  Company Number: US-PERRIGO-21US002984

PATIENT
  Age: 79 Year
  Sex: Male
  Weight: 70.295 kg

DRUGS (3)
  1. CETIRIZINE HYDROCHLORIDE [Suspect]
     Active Substance: CETIRIZINE HYDROCHLORIDE
     Indication: Skin burning sensation
     Dosage: 10 MG, QD
     Route: 048
     Dates: start: 20210223, end: 20210224
  2. PROSTATIC [Concomitant]
     Indication: Dysuria
     Dosage: UNKNOWN, UNKNOWN
     Route: 065
  3. GABAPENTIN [Concomitant]
     Active Substance: GABAPENTIN
     Indication: Skin burning sensation
     Dosage: UNKNOWN, UNKNOWN
     Route: 065

REACTIONS (2)
  - Product administered to patient of inappropriate age [Recovered/Resolved]
  - Off label use [Recovered/Resolved]

NARRATIVE: CASE EVENT DATE: 20210223
